FAERS Safety Report 13638565 (Version 3)
Quarter: 2017Q3

REPORT INFORMATION
  Report Type: Report from Study
  Country: DE (occurrence: DE)
  Receive Date: 20170609
  Receipt Date: 20170823
  Transmission Date: 20171127
  Serious: Yes (Other)
  Sender: FDA-Public Use
  Company Number: PHHY2017DE081959

PATIENT
  Sex: Male

DRUGS (4)
  1. TASIGNA [Suspect]
     Active Substance: NILOTINIB
     Dosage: 200 MG, BID
     Route: 065
     Dates: start: 201609, end: 20170717
  2. TASIGNA [Suspect]
     Active Substance: NILOTINIB
     Dosage: 300 MG, QD
     Route: 065
     Dates: start: 20170717
  3. TASIGNA [Suspect]
     Active Substance: NILOTINIB
     Dosage: 500 MG, QD
     Route: 065
     Dates: start: 2015, end: 2016
  4. TASIGNA [Suspect]
     Active Substance: NILOTINIB
     Indication: CHRONIC MYELOID LEUKAEMIA
     Dosage: 600 MG, QD
     Route: 065
     Dates: start: 201402, end: 2015

REACTIONS (15)
  - Diastolic dysfunction [Unknown]
  - Cerebral arteriosclerosis [Unknown]
  - Tachycardia paroxysmal [Unknown]
  - Hypertension [Unknown]
  - Extrasystoles [Unknown]
  - Aortic dilatation [Unknown]
  - Heart rate decreased [Unknown]
  - Supraventricular extrasystoles [Unknown]
  - Heart rate increased [Unknown]
  - Ventricular extrasystoles [Unknown]
  - Aortic valve incompetence [Unknown]
  - Left atrial enlargement [Unknown]
  - Arteriosclerosis [Unknown]
  - Bradycardia [Unknown]
  - Arrhythmia [Unknown]

NARRATIVE: CASE EVENT DATE: 20151014
